FAERS Safety Report 23477366 (Version 1)
Quarter: 2024Q1

REPORT INFORMATION
  Report Type: Report from Study
  Country: US (occurrence: US)
  Receive Date: 20240204
  Receipt Date: 20240204
  Transmission Date: 20240410
  Serious: No
  Sender: FDA-Public Use
  Company Number: US-EXELIXIS-CABO-23066599

PATIENT
  Age: 67 Year
  Sex: Female

DRUGS (12)
  1. CABOMETYX [Suspect]
     Active Substance: CABOZANTINIB S-MALATE
     Indication: Hepatic angiosarcoma
     Dosage: 40 MG, QD
     Route: 048
     Dates: start: 20230708
  2. CABOMETYX [Suspect]
     Active Substance: CABOZANTINIB S-MALATE
     Indication: Breast angiosarcoma
     Dosage: 40 MG, QD
     Route: 048
  3. ASCORBIC ACID [Concomitant]
     Active Substance: ASCORBIC ACID
  4. ASPIRIN [Concomitant]
     Active Substance: ASPIRIN
  5. CHOLECALCIFEROL [Concomitant]
     Active Substance: CHOLECALCIFEROL
  6. IBUPROFEN [Concomitant]
     Active Substance: IBUPROFEN
  7. LOSARTAN [Concomitant]
     Active Substance: LOSARTAN
  8. ROSUVASTATIN [Concomitant]
     Active Substance: ROSUVASTATIN
  9. LETROZOLE [Concomitant]
     Active Substance: LETROZOLE
  10. AMLODIPINE [Concomitant]
     Active Substance: AMLODIPINE BESYLATE
  11. XANAX [Concomitant]
     Active Substance: ALPRAZOLAM
  12. AMOXICILLIN [Concomitant]
     Active Substance: AMOXICILLIN

REACTIONS (22)
  - Pyrexia [Unknown]
  - Blood pressure increased [Recovering/Resolving]
  - Hepatic enzyme increased [Recovering/Resolving]
  - Blood glucose increased [Recovering/Resolving]
  - Rash pruritic [Recovering/Resolving]
  - Neutrophil count decreased [Unknown]
  - Platelet count decreased [Unknown]
  - Abdominal discomfort [Unknown]
  - Fatigue [Unknown]
  - Stomatitis [Recovered/Resolved]
  - Constipation [Recovered/Resolved]
  - Headache [Recovered/Resolved]
  - Diarrhoea [Recovered/Resolved]
  - Nausea [Unknown]
  - Oral herpes [Recovered/Resolved]
  - Oral infection [Recovered/Resolved]
  - Tooth disorder [Unknown]
  - Incision site rash [Recovered/Resolved]
  - Sinusitis [Not Recovered/Not Resolved]
  - Flushing [Unknown]
  - Product dose omission issue [Unknown]
  - Off label use [Unknown]

NARRATIVE: CASE EVENT DATE: 20230701
